FAERS Safety Report 4304183-3 (Version None)
Quarter: 2004Q1

REPORT INFORMATION
  Report Type: 
  Country: None (occurrence: None)
  Receive Date: 20040224
  Receipt Date: 20040206
  Transmission Date: 20041129
  Serious: No
  Sender: FDA-Public Use
  Company Number: 7445

PATIENT
  Sex: Female

DRUGS (2)
  1. METHOTREXATE [Suspect]
     Indication: GESTATIONAL TROPHOBLASTIC TUMOUR
     Dosage: 50 MG ALT_DAYS IM
     Route: 030
  2. FOLINIC ACID [Concomitant]

REACTIONS (2)
  - DRUG TOXICITY [None]
  - PLEURITIC PAIN [None]
